FAERS Safety Report 6505284-1 (Version None)
Quarter: 2009Q4

REPORT INFORMATION
  Report Type: 
  Country: None (occurrence: None)
  Receive Date: 20091218
  Receipt Date: 20091210
  Transmission Date: 20100525
  Serious: Yes (Death, Other)
  Sender: FDA-Public Use
  Company Number: GB-JNJFOC-20091203111

PATIENT
  Sex: Female
  Weight: 66 kg

DRUGS (11)
  1. REMICADE [Suspect]
     Indication: RHEUMATOID ARTHRITIS
     Route: 042
     Dates: start: 20060919, end: 20090421
  2. SULFASALAZINE [Concomitant]
  3. LEFLUNOMIDE [Concomitant]
  4. PREDNISOLONE [Concomitant]
  5. ADCAL [Concomitant]
  6. ALENDRONATE SODIUM [Concomitant]
  7. CELEBREX [Concomitant]
  8. DIHYDROCODEINE BITARTRATE INJ [Concomitant]
  9. HUMALOG [Concomitant]
  10. ROSUVASTATIN [Concomitant]
  11. LEVOTHYROXINE SODIUM [Concomitant]

REACTIONS (1)
  - METASTATIC NEOPLASM [None]
